FAERS Safety Report 18077364 (Version 1)
Quarter: 2020Q3

REPORT INFORMATION
  Report Type: Spontaneous
  Country: CA (occurrence: CA)
  Receive Date: 20200727
  Receipt Date: 20200727
  Transmission Date: 20201103
  Serious: Yes (Other)
  Sender: FDA-Public Use
  Company Number: CA-BAUSCH-BL-2020-020876

PATIENT
  Sex: Female
  Weight: 77 kg

DRUGS (9)
  1. ABILIFY [Suspect]
     Active Substance: ARIPIPRAZOLE
     Indication: SCHIZOPHRENIA
     Route: 048
  2. CLONAZEPAM. [Suspect]
     Active Substance: CLONAZEPAM
     Indication: INSOMNIA
     Route: 048
  3. TOPIRAMATE. [Suspect]
     Active Substance: TOPIRAMATE
     Indication: WEIGHT CONTROL
     Route: 048
  4. HALDOL [Suspect]
     Active Substance: HALOPERIDOL
     Indication: SCHIZOPHRENIA
     Route: 048
  5. NOZINAN [Suspect]
     Active Substance: LEVOMEPROMAZINE
     Indication: SCHIZOPHRENIA
     Route: 048
  6. NOZINAN [Suspect]
     Active Substance: LEVOMEPROMAZINE
     Indication: AFFECTIVE DISORDER
     Route: 048
  7. QUETIAPINE. [Concomitant]
     Active Substance: QUETIAPINE
     Indication: SCHIZOPHRENIA
     Route: 065
  8. DIAZEPAM. [Suspect]
     Active Substance: DIAZEPAM
     Indication: AFFECTIVE DISORDER
     Route: 048
  9. CIPRALEX [Suspect]
     Active Substance: ESCITALOPRAM OXALATE
     Indication: DEPRESSION
     Route: 048

REACTIONS (2)
  - Hallucination, auditory [Unknown]
  - Maternal exposure during pregnancy [Unknown]
